FAERS Safety Report 9316579 (Version 1)
Quarter: 2013Q2

REPORT INFORMATION
  Report Type: Report from Study
  Country: US (occurrence: US)
  Receive Date: 20130530
  Receipt Date: 20130530
  Transmission Date: 20140414
  Serious: Yes (Other)
  Sender: FDA-Public Use
  Company Number: US-MYLANLABS-2013S1009608

PATIENT
  Age: 18 Year
  Sex: Male
  Weight: 78.02 kg

DRUGS (1)
  1. AMNESTEEM CAPSULES [Suspect]
     Indication: ACNE
     Dates: start: 201301, end: 20130429

REACTIONS (1)
  - Tendon rupture [Not Recovered/Not Resolved]
